FAERS Safety Report 23734904 (Version 1)
Quarter: 2024Q2

REPORT INFORMATION
  Report Type: Spontaneous
  Country: US (occurrence: US)
  Receive Date: 20240412
  Receipt Date: 20240412
  Transmission Date: 20240716
  Serious: Yes (Other)
  Sender: FDA-Public Use
  Company Number: US-AMGEN-USASP2024070226

PATIENT
  Age: 1 Week
  Sex: Male

DRUGS (8)
  1. RITUXIMAB [Suspect]
     Active Substance: RITUXIMAB
     Indication: Epstein Barr virus positive mucocutaneous ulcer
     Dosage: UNK UNK, Q4WK
     Route: 065
  2. FILGRASTIM [Suspect]
     Active Substance: FILGRASTIM
     Indication: Infantile genetic agranulocytosis
     Dosage: 10 MICROGRAM/KILOGRAM
     Route: 065
  3. FILGRASTIM [Suspect]
     Active Substance: FILGRASTIM
     Dosage: 30 MICROGRAM/KILOGRAM, QD
     Route: 065
  4. PENTAMIDINE [Concomitant]
     Active Substance: PENTAMIDINE
     Indication: Prophylaxis
  5. FLUCONAZOLE [Concomitant]
     Active Substance: FLUCONAZOLE
     Indication: Prophylaxis
  6. ALEMTUZUMAB [Concomitant]
     Active Substance: ALEMTUZUMAB
  7. FLUDARABINE [Concomitant]
     Active Substance: FLUDARABINE PHOSPHATE
  8. MELPHALAN [Concomitant]
     Active Substance: MELPHALAN

REACTIONS (8)
  - Graft versus host disease [Unknown]
  - Thrombocytopenia [Recovered/Resolved]
  - Sepsis [Unknown]
  - Developmental delay [Not Recovered/Not Resolved]
  - Off label use [Unknown]
  - Epstein-Barr virus infection [Unknown]
  - Venoocclusive disease [Unknown]
  - Drug ineffective [Unknown]
